FAERS Safety Report 18368737 (Version 1)
Quarter: 2020Q4

REPORT INFORMATION
  Report Type: Spontaneous
  Country: SG (occurrence: SG)
  Receive Date: 20201010
  Receipt Date: 20201010
  Transmission Date: 20210114
  Serious: Yes (Other)
  Sender: FDA-Public Use
  Company Number: SG-ABBVIE-20K-141-3599252-00

PATIENT
  Age: 61 Year
  Sex: Female

DRUGS (1)
  1. CALCITRIOL. [Suspect]
     Active Substance: CALCITRIOL
     Indication: PRODUCT USED FOR UNKNOWN INDICATION
     Route: 065

REACTIONS (4)
  - Eye oedema [Unknown]
  - Tongue oedema [Unknown]
  - Face oedema [Unknown]
  - Lip oedema [Unknown]

NARRATIVE: CASE EVENT DATE: 20200907
